FAERS Safety Report 5024444-2 (Version None)
Quarter: 2006Q2

REPORT INFORMATION
  Report Type: 
  Country: None (occurrence: None)
  Receive Date: 20060426
  Receipt Date: 20060210
  Transmission Date: 20061013
  Serious: Yes (Other)
  Sender: FDA-Public Use
  Company Number: 2005143488

PATIENT
  Age: 57 Year
  Sex: Female

DRUGS (1)
  1. LYRICA [Suspect]
     Indication: ILL-DEFINED DISORDER
     Dosage: 50 MG (50 MG, 1 IN 1 D), ORAL
     Route: 048
     Dates: start: 20050926, end: 20050928

REACTIONS (7)
  - ABNORMAL DREAMS [None]
  - BURNING SENSATION [None]
  - DIZZINESS [None]
  - DYSKINESIA [None]
  - HALLUCINATION [None]
  - LOGORRHOEA [None]
  - MANIA [None]
